FAERS Safety Report 8576588-6 (Version None)
Quarter: 2012Q3

REPORT INFORMATION
  Report Type: 
  Country: None (occurrence: None)
  Receive Date: 20120725
  Receipt Date: 20120713
  Transmission Date: 20120928
  Serious: No
  Sender: FDA-Public Use
  Company Number: 2012-3121

PATIENT
  Age: 10 Year
  Sex: Female
  Weight: 24 kg

DRUGS (6)
  1. INCRELEX [Suspect]
     Indication: BLOOD GROWTH HORMONE ABNORMAL
     Dosage: 240 UG/KA (120 UG/KG,2 IN 1 D),SUBCUTANEOUS,  53 UG/KG(53 UG/KG, 1 IN 1 D), SUBCUTANEOUS
     Route: 058
     Dates: start: 20071218, end: 20100327
  2. INCRELEX [Suspect]
     Indication: BLOOD GROWTH HORMONE ABNORMAL
     Dosage: 240 UG/KA (120 UG/KG,2 IN 1 D),SUBCUTANEOUS,  53 UG/KG(53 UG/KG, 1 IN 1 D), SUBCUTANEOUS
     Route: 058
     Dates: start: 20100501, end: 20100517
  3. INCRELEX [Suspect]
     Indication: BLOOD GROWTH HORMONE ABNORMAL
     Dosage: 240 UG/KA (120 UG/KG,2 IN 1 D),SUBCUTANEOUS,  53 UG/KG(53 UG/KG, 1 IN 1 D), SUBCUTANEOUS
     Route: 058
     Dates: start: 20100518
  4. OXYGEN (OXYGEN) [Concomitant]
  5. BACTRIM [Concomitant]
  6. UNSPECIFIED DIABETES MEDICATION (ALL OTHER THERAPEUTIC PRODUCTS) [Concomitant]

REACTIONS (2)
  - OVARIAN ENLARGEMENT [None]
  - HEADACHE [None]
